FAERS Safety Report 6635273-8 (Version None)
Quarter: 2010Q1

REPORT INFORMATION
  Report Type: 
  Country: None (occurrence: None)
  Receive Date: 20100315
  Receipt Date: 20091118
  Transmission Date: 20100710
  Serious: Yes (Death)
  Sender: FDA-Public Use
  Company Number: US-SANOFI-AVENTIS-2009SA002628

PATIENT
  Age: 57 Year
  Sex: Female

DRUGS (2)
  1. ELITEK [Suspect]
     Route: 041
     Dates: start: 20080524, end: 20080524
  2. ANTINEOPLASTIC AGENTS [Concomitant]

REACTIONS (5)
  - ACIDOSIS [None]
  - CARDIAC ARREST [None]
  - HYPERKALAEMIA [None]
  - RENAL FAILURE ACUTE [None]
  - VENTRICULAR TACHYCARDIA [None]
